FAERS Safety Report 6851405-0 (Version None)
Quarter: 2010Q3

REPORT INFORMATION
  Report Type: 
  Country: None (occurrence: None)
  Receive Date: 20100717
  Receipt Date: 20080116
  Transmission Date: 20110219
  Serious: No
  Sender: FDA-Public Use
  Company Number: US-PFIZER INC-2008006225

PATIENT
  Sex: Male

DRUGS (7)
  1. CHANTIX [Suspect]
     Indication: SMOKING CESSATION THERAPY
     Route: 048
     Dates: start: 20080103
  2. ALPRAZOLAM [Concomitant]
  3. ATENOLOL [Concomitant]
  4. HYDROXYZINE [Concomitant]
  5. LIPITOR [Concomitant]
  6. AMLODIPINE BESYLATE [Concomitant]
  7. ACETYLSALICYLIC ACID [Concomitant]

REACTIONS (1)
  - ABNORMAL DREAMS [None]
